FAERS Safety Report 5861455-9 (Version None)
Quarter: 2008Q3

REPORT INFORMATION
  Report Type: 
  Country: None (occurrence: None)
  Receive Date: 20080827
  Receipt Date: 20080515
  Transmission Date: 20090109
  Serious: No
  Sender: FDA-Public Use
  Company Number: US-ABBOTT-08P-163-0451837-00

PATIENT
  Sex: Female
  Weight: 99.88 kg

DRUGS (7)
  1. COATED PDS [Suspect]
     Indication: BLOOD TRIGLYCERIDES INCREASED
     Route: 048
     Dates: start: 20070101, end: 20080501
  2. LISINOPRIL [Concomitant]
     Indication: HYPERTENSION
     Route: 048
     Dates: start: 20030101
  3. SULDINAC [Concomitant]
     Indication: PAIN
     Route: 048
     Dates: start: 20050101
  4. AMLODIPINE [Concomitant]
     Indication: HYPERTENSION
     Route: 048
  5. ESTROGENS CONJUGATED [Concomitant]
     Indication: MENOPAUSE
     Route: 048
     Dates: start: 20060101
  6. METFORMIN HCL [Concomitant]
     Indication: DIABETES MELLITUS
     Route: 048
     Dates: start: 20040101
  7. SIMVASTATIN [Concomitant]
     Indication: BLOOD CHOLESTEROL INCREASED
     Route: 048

REACTIONS (3)
  - PARAESTHESIA [None]
  - PRURITUS [None]
  - RASH [None]
